FAERS Safety Report 9685791 (Version 1)
Quarter: 2013Q4

REPORT INFORMATION
  Report Type: Spontaneous
  Country: US (occurrence: US)
  Receive Date: 20131113
  Receipt Date: 20131113
  Transmission Date: 20140711
  Serious: No
  Sender: FDA-Public Use
  Company Number: US-PFIZER INC-2013321061

PATIENT
  Sex: Female

DRUGS (1)
  1. ADVIL [Suspect]
     Indication: TOOTHACHE
     Dosage: 2 TABLETS, EVERY FOUR HOURS
     Dates: start: 20131109

REACTIONS (2)
  - Overdose [Unknown]
  - Drug ineffective [Unknown]
